FAERS Safety Report 6168286-3 (Version None)
Quarter: 2009Q2

REPORT INFORMATION
  Report Type: 
  Country: None (occurrence: None)
  Receive Date: 20090427
  Receipt Date: 20090415
  Transmission Date: 20091009
  Serious: Yes (Other)
  Sender: FDA-Public Use
  Company Number: CA-PFIZER INC-2009199056

PATIENT

DRUGS (4)
  1. ZITHROMAX [Suspect]
     Indication: PHARYNGITIS STREPTOCOCCAL
     Dosage: 400 MG ON DAY 1, 200 MG DAYS 2 TO 5
     Dates: start: 20090401, end: 20090401
  2. ZITHROMAX [Suspect]
     Dosage: UNK
     Dates: start: 20090401, end: 20090415
  3. HEPATITIS VACCINES [Concomitant]
  4. HUMAN PAPILLOMAVIRUS VACCINE [Concomitant]

REACTIONS (5)
  - ANXIETY [None]
  - COGNITIVE DISORDER [None]
  - CONFUSIONAL STATE [None]
  - INCREASED APPETITE [None]
  - NIGHTMARE [None]
